FAERS Safety Report 4727483-1 (Version None)
Quarter: 2005Q3

REPORT INFORMATION
  Report Type: 
  Country: None (occurrence: None)
  Receive Date: 20050728
  Receipt Date: 20050718
  Transmission Date: 20060218
  Serious: Yes (Other)
  Sender: FDA-Public Use
  Company Number: US-ROCHE-411259

PATIENT
  Age: 46 Year
  Sex: Female

DRUGS (4)
  1. PEGASYS [Suspect]
     Dosage: ROUTE REPORTED AS INJ.
     Route: 050
     Dates: start: 20030615
  2. COPEGUS [Suspect]
     Route: 048
     Dates: start: 20030615
  3. ROFERON-A [Suspect]
     Dosage: ROUTE REPORTED AS INJ.
     Route: 050
     Dates: start: 20000615
  4. ROFERON-A [Suspect]
     Route: 050
     Dates: start: 20020615

REACTIONS (9)
  - ALOPECIA [None]
  - BLINDNESS UNILATERAL [None]
  - DEHYDRATION [None]
  - FATIGUE [None]
  - HYPOTHYROIDISM [None]
  - INFLUENZA LIKE ILLNESS [None]
  - LOSS OF CONSCIOUSNESS [None]
  - THERAPY NON-RESPONDER [None]
  - VOMITING [None]
